FAERS Safety Report 8025924-8 (Version None)
Quarter: 2012Q1

REPORT INFORMATION
  Report Type: 
  Country: None (occurrence: None)
  Receive Date: 20120105
  Receipt Date: 20110902
  Transmission Date: 20120608
  Serious: No
  Sender: FDA-Public Use
  Company Number: US-ABBOTT-11P-163-0851497-00

PATIENT
  Sex: Female

DRUGS (4)
  1. ATENOLOL [Concomitant]
     Indication: HYPERTENSION
  2. CELEBREX [Concomitant]
     Indication: PRODUCT USED FOR UNKNOWN INDICATION
  3. SYNTHROID [Suspect]
     Dates: start: 20110801
  4. SYNTHROID [Suspect]
     Indication: HYPOTHYROIDISM
     Dates: end: 20110801

REACTIONS (4)
  - MULTIPLE ALLERGIES [None]
  - BLOOD THYROID STIMULATING HORMONE INCREASED [None]
  - FALL [None]
  - LOWER LIMB FRACTURE [None]
